FAERS Safety Report 10312002 (Version 1)
Quarter: 2014Q3

REPORT INFORMATION
  Report Type: Spontaneous
  Country: JP (occurrence: None)
  Receive Date: 20140714
  Receipt Date: 20140714
  Transmission Date: 20150326
  Serious: Yes (Hospitalization)
  Sender: FDA-Public Use
  Company Number: JP-016298

PATIENT
  Sex: Male

DRUGS (1)
  1. DEGARELIX (GONAX) [Suspect]
     Active Substance: DEGARELIX
     Indication: PRODUCT USED FOR UNKNOWN INDICATION

REACTIONS (1)
  - Fracture [None]
